FAERS Safety Report 24295896 (Version 1)
Quarter: 2024Q3

REPORT INFORMATION
  Report Type: Report from Study
  Country: CO (occurrence: CO)
  Receive Date: 20240909
  Receipt Date: 20240909
  Transmission Date: 20241017
  Serious: Yes (Hospitalization)
  Sender: ABBVIE
  Company Number: CO-ABBVIE-5906923

PATIENT
  Sex: Female

DRUGS (1)
  1. RINVOQ [Suspect]
     Active Substance: UPADACITINIB
     Indication: Rheumatoid arthritis
     Dosage: MODIFIED-RELEASE FILM-COATED TABLET?FORM STRENGTH 15 MG
     Route: 048
     Dates: start: 20231106, end: 20240705

REACTIONS (1)
  - Colitis ulcerative [Unknown]
